FAERS Safety Report 15203457 (Version 1)
Quarter: 2018Q3

REPORT INFORMATION
  Report Type: Spontaneous
  Country: DE (occurrence: DE)
  Receive Date: 20180726
  Receipt Date: 20180726
  Transmission Date: 20181010
  Serious: Yes (Other)
  Sender: FDA-Public Use
  Company Number: PHHY2018DE053143

PATIENT
  Age: 66 Year
  Sex: Male

DRUGS (1)
  1. DOXYCYCLINE. [Suspect]
     Active Substance: DOXYCYCLINE
     Indication: LYME DISEASE
     Route: 065

REACTIONS (3)
  - Lyme disease [Recovering/Resolving]
  - Diarrhoea [Recovering/Resolving]
  - Drug interaction [Recovering/Resolving]
